FAERS Safety Report 22320730 (Version 1)
Quarter: 2023Q2

REPORT INFORMATION
  Report Type: Spontaneous
  Country: US (occurrence: US)
  Receive Date: 20230515
  Receipt Date: 20230515
  Transmission Date: 20230722
  Serious: No
  Sender: FDA-Public Use
  Company Number: US-MYLANLABS-2023M1047891

PATIENT
  Age: 58 Year
  Sex: Male

DRUGS (2)
  1. SEMGLEE (INSULIN GLARGINE-YFGN) [Suspect]
     Active Substance: INSULIN GLARGINE-YFGN
     Indication: Type 1 diabetes mellitus
     Dosage: 40 INTERNATIONAL UNIT, BID (IN THE MORNING AND BEFORE BEDTIME)
     Route: 058
  2. NOVOLOG [Concomitant]
     Active Substance: INSULIN ASPART
     Dosage: 20 INTERNATIONAL UNIT, TID
     Route: 065

REACTIONS (3)
  - Dizziness [Unknown]
  - Appetite disorder [Unknown]
  - Device issue [Unknown]

NARRATIVE: CASE EVENT DATE: 20230429
